FAERS Safety Report 10794935 (Version 1)
Quarter: 2015Q1

REPORT INFORMATION
  Report Type: Spontaneous
  Country: US (occurrence: US)
  Receive Date: 20150214
  Receipt Date: 20150214
  Transmission Date: 20150721
  Serious: No
  Sender: FDA-Public Use
  Company Number: US-GLAXOSMITHKLINE-A1068178A

PATIENT

DRUGS (2)
  1. NICODERM CQ [Suspect]
     Active Substance: NICOTINE
     Indication: SMOKING CESSATION THERAPY
     Route: 062
     Dates: start: 20140331, end: 20140404
  2. NICODERM CQ [Suspect]
     Active Substance: NICOTINE
     Dates: start: 20140331, end: 20140404

REACTIONS (4)
  - Product quality issue [Unknown]
  - Night sweats [Not Recovered/Not Resolved]
  - Nightmare [Unknown]
  - Abnormal dreams [Unknown]

NARRATIVE: CASE EVENT DATE: 20140331
